FAERS Safety Report 11297118 (Version 1)
Quarter: 2015Q3

REPORT INFORMATION
  Report Type: Spontaneous
  Country: US (occurrence: US)
  Receive Date: 20150722
  Receipt Date: 20150722
  Transmission Date: 20151125
  Serious: No
  Sender: FDA-Public Use
  Company Number: US-ELI_LILLY_AND_COMPANY-US201102003573

PATIENT
  Sex: Female

DRUGS (2)
  1. EVISTA [Suspect]
     Active Substance: RALOXIFENE HYDROCHLORIDE
     Indication: BREAST CONSERVING SURGERY
     Dosage: 1 D/F, UNK
  2. FORTEO [Concomitant]
     Active Substance: TERIPARATIDE
     Dosage: 1 D/F, UNK

REACTIONS (2)
  - Dizziness [Unknown]
  - Feeling drunk [Unknown]
